FAERS Safety Report 8256419-4 (Version None)
Quarter: 2012Q2

REPORT INFORMATION
  Report Type: 
  Country: None (occurrence: None)
  Receive Date: 20120403
  Receipt Date: 20120327
  Transmission Date: 20120825
  Serious: Yes (Other)
  Sender: FDA-Public Use
  Company Number: US-PFIZER INC-2012079330

PATIENT
  Sex: Male

DRUGS (3)
  1. REVATIO [Suspect]
     Dosage: UNK
  2. LETAIRIS [Suspect]
     Dosage: 5 MG, UNK
     Route: 048
     Dates: start: 20120302, end: 20120303
  3. FLECAINIDE ACETATE [Suspect]
     Dosage: UNK

REACTIONS (6)
  - DYSPHAGIA [None]
  - SKIN BURNING SENSATION [None]
  - FEELING HOT [None]
  - HYPERSENSITIVITY [None]
  - ERYTHEMA [None]
  - PHARYNGEAL OEDEMA [None]
